FAERS Safety Report 5914606-1 (Version None)
Quarter: 2008Q4

REPORT INFORMATION
  Report Type: 
  Country: None (occurrence: None)
  Receive Date: 20081008
  Receipt Date: 20080926
  Transmission Date: 20090506
  Serious: Yes (Other)
  Sender: FDA-Public Use
  Company Number: TRP_05910_2008

PATIENT
  Age: 39 Year
  Sex: Female

DRUGS (2)
  1. RIBAVIRIN [Suspect]
     Indication: DRUG USE FOR UNKNOWN INDICATION
     Dosage: (DF ORAL)
     Route: 048
  2. PEGASYS [Suspect]
     Indication: DRUG USE FOR UNKNOWN INDICATION
     Dosage: (DF SUBCUTANEOUS)
     Route: 058

REACTIONS (5)
  - DYSURIA [None]
  - HEADACHE [None]
  - OVARIAN CYST [None]
  - VAGINAL HAEMORRHAGE [None]
  - WEIGHT DECREASED [None]
